FAERS Safety Report 19835782 (Version 4)
Quarter: 2023Q2

REPORT INFORMATION
  Report Type: Report from Study
  Country: AU (occurrence: AU)
  Receive Date: 20210914
  Receipt Date: 20230403
  Transmission Date: 20230721
  Serious: Yes (Hospitalization)
  Sender: FDA-Public Use
  Company Number: AU-NOVARTISPH-NVSC2021AU191139

PATIENT
  Age: 12 Year
  Sex: Female
  Weight: 29.8 kg

DRUGS (5)
  1. TRAMETINIB [Suspect]
     Active Substance: TRAMETINIB
     Indication: Neurofibroma
     Dosage: 0.5 MG, QD
     Route: 048
     Dates: start: 20200508, end: 20210810
  2. TRAMETINIB [Suspect]
     Active Substance: TRAMETINIB
     Dosage: 0.75 MG, QD
     Route: 065
     Dates: start: 20200508
  3. TRAMETINIB [Suspect]
     Active Substance: TRAMETINIB
     Dosage: 2.5 MG, QD
     Route: 048
     Dates: start: 20210508, end: 20210819
  4. TRAMETINIB [Suspect]
     Active Substance: TRAMETINIB
     Dosage: 0.025 MG/KG (0.05 MG/ML POWDER FOR ORAL SOLUTION)
     Route: 048
  5. TRAMETINIB [Suspect]
     Active Substance: TRAMETINIB
     Dosage: 1 MG, QD, (6X0.5MG TABLETS)
     Route: 065

REACTIONS (2)
  - Spinal cord injury lumbar [Unknown]
  - Pain in extremity [Not Recovered/Not Resolved]

NARRATIVE: CASE EVENT DATE: 20210811
